FAERS Safety Report 26038170 (Version 1)
Quarter: 2025Q4

REPORT INFORMATION
  Report Type: Spontaneous
  Country: US (occurrence: US)
  Receive Date: 20251113
  Receipt Date: 20251113
  Transmission Date: 20260117
  Serious: No
  Sender: ELI LILLY AND COMPANY
  Company Number: US-ELI_LILLY_AND_COMPANY-US202511010055

PATIENT
  Age: 70 Year
  Sex: Male

DRUGS (4)
  1. MOUNJARO [Suspect]
     Active Substance: TIRZEPATIDE
     Indication: Blood glucose decreased
     Dosage: 2.5 MG, WEEKLY (1/W)
     Route: 065
     Dates: start: 20251020
  2. MOUNJARO [Suspect]
     Active Substance: TIRZEPATIDE
     Indication: Blood glucose decreased
     Dosage: 2.5 MG, WEEKLY (1/W)
     Route: 065
     Dates: start: 20251020
  3. MOUNJARO [Suspect]
     Active Substance: TIRZEPATIDE
     Indication: Blood glucose decreased
     Dosage: 2.5 MG, WEEKLY (1/W)
     Route: 065
     Dates: start: 20251020
  4. MOUNJARO [Suspect]
     Active Substance: TIRZEPATIDE
     Indication: Blood glucose decreased
     Dosage: 2.5 MG, WEEKLY (1/W)
     Route: 065
     Dates: start: 20251020

REACTIONS (4)
  - Illness [Unknown]
  - Diarrhoea [Unknown]
  - Drug ineffective [Unknown]
  - Blood glucose increased [Unknown]

NARRATIVE: CASE EVENT DATE: 20251102
